FAERS Safety Report 4290326-7 (Version None)
Quarter: 2004Q1

REPORT INFORMATION
  Report Type: 
  Country: None (occurrence: None)
  Receive Date: 20040126
  Receipt Date: 20031010
  Transmission Date: 20041129
  Serious: No
  Sender: FDA-Public Use
  Company Number: USA030127486

PATIENT
  Age: 60 Year
  Sex: Female
  Weight: 61 kg

DRUGS (8)
  1. FORTEO [Suspect]
     Indication: OSTEOPOROSIS
     Dosage: 1 DSG FORM/1 DAY
     Dates: start: 20030122
  2. IMODIUM [Concomitant]
  3. LOMOTIL [Concomitant]
  4. SYNTHROID [Concomitant]
  5. VITAMIN B-12 [Concomitant]
  6. ZANTAC [Concomitant]
  7. ROWASA [Concomitant]
  8. SODIUM BICARBONATE [Concomitant]

REACTIONS (5)
  - INJECTION SITE BURNING [None]
  - INJECTION SITE HAEMORRHAGE [None]
  - MUSCLE CRAMP [None]
  - PAIN IN EXTREMITY [None]
  - UNDERDOSE [None]
